FAERS Safety Report 8519082 (Version 4)
Quarter: 2012Q4

REPORT INFORMATION
  Report Type: 
  Country: PE (occurrence: US)
  Receive Date: 20120418
  Receipt Date: 20120911
  Transmission Date: 20130627
  Serious: Yes (Hospitalization)
  Sender: FDA-Public Use
  Company Number: US-BAYER-2012-034707

PATIENT
  Age: 33 Year
  Sex: Female
  Weight: 49.89 kg

DRUGS (2)
  1. YASMIN [Suspect]
     Dosage: UNK
     Dates: start: 2000, end: 2009
  2. TESTS FOR DIABETES [Concomitant]
     Indication: MEDICAL DIET
     Dosage: UNK
     Dates: start: 20100913

REACTIONS (4)
  - Cerebral artery occlusion [None]
  - Cerebrovascular accident [None]
  - Depression [None]
  - Hemiparesis [None]
